FAERS Safety Report 7120720-8 (Version None)
Quarter: 2010Q4

REPORT INFORMATION
  Report Type: 
  Country: None (occurrence: None)
  Receive Date: 20101119
  Receipt Date: 20101119
  Transmission Date: 20110411
  Serious: Yes (Other)
  Sender: FDA-Public Use
  Company Number: None

PATIENT
  Sex: Male
  Weight: 72.5755 kg

DRUGS (2)
  1. OXYCONTIN [Suspect]
     Indication: ANALGESIC THERAPY
     Dosage: 6 TABLETS REDUCED DAILY NOW TO 4 TABLETS DAILY PAST 3-4 YRS. W/INCR. DOSAGES AS TOLERANCE INCREASES
  2. OXYCONTIN [Suspect]
     Indication: INTERVERTEBRAL DISC PROTRUSION
     Dosage: 6 TABLETS REDUCED DAILY NOW TO 4 TABLETS DAILY PAST 3-4 YRS. W/INCR. DOSAGES AS TOLERANCE INCREASES

REACTIONS (12)
  - AGITATION [None]
  - AMNESIA [None]
  - ANGER [None]
  - ASTHENIA [None]
  - DISTURBANCE IN ATTENTION [None]
  - HYPERHIDROSIS [None]
  - NAUSEA [None]
  - PALPITATIONS [None]
  - PANIC ATTACK [None]
  - PRODUCT FORMULATION ISSUE [None]
  - TREMOR [None]
  - VOMITING [None]
